FAERS Safety Report 7028818-X (Version None)
Quarter: 2010Q3

REPORT INFORMATION
  Report Type: 
  Country: None (occurrence: None)
  Receive Date: 20100830
  Receipt Date: 20100813
  Transmission Date: 20110219
  Serious: Yes (Hospitalization)
  Sender: FDA-Public Use
  Company Number: 20100810CINRY1583

PATIENT
  Age: 46 Year
  Sex: Female

DRUGS (5)
  1. CINRYZE [Suspect]
     Indication: HEREDITARY ANGIOEDEMA
     Dosage: (1000 UNIT,2 IN I WK), NTRAVENOUS
     Route: 042
     Dates: start: 20100601, end: 20100813
  2. CINRYZE [Suspect]
     Indication: PROPHYLAXIS
     Dosage: (1000 UNIT,2 IN I WK), NTRAVENOUS
     Route: 042
     Dates: start: 20100601, end: 20100813
  3. EFFEXOR [Concomitant]
  4. CLONAZEPAM [Concomitant]
  5. NEXIUM [Concomitant]

REACTIONS (11)
  - ANAEMIA [None]
  - ARTHRALGIA [None]
  - BONE PAIN [None]
  - CHEST PAIN [None]
  - DISEASE PRODROMAL STAGE [None]
  - DYSPNOEA [None]
  - FATIGUE [None]
  - HEADACHE [None]
  - MYALGIA [None]
  - PHOTOPHOBIA [None]
  - TYPE III IMMUNE COMPLEX MEDIATED REACTION [None]
